FAERS Safety Report 7320054-2 (Version None)
Quarter: 2011Q1

REPORT INFORMATION
  Report Type: 
  Country: None (occurrence: None)
  Receive Date: 20110228
  Receipt Date: 20110218
  Transmission Date: 20110831
  Serious: Yes (Other)
  Sender: FDA-Public Use
  Company Number: FR-PFIZER INC-2011036206

PATIENT
  Sex: Male

DRUGS (3)
  1. KARDEGIC [Concomitant]
     Dosage: UNK
  2. TAHOR [Suspect]
     Dosage: UNK
  3. CLOPIDOGREL [Concomitant]
     Dosage: UNK

REACTIONS (2)
  - TOXIC EPIDERMAL NECROLYSIS [None]
  - DERMATITIS [None]
